FAERS Safety Report 5513786-X (Version None)
Quarter: 2007Q4

REPORT INFORMATION
  Report Type: 
  Country: None (occurrence: None)
  Receive Date: 20071113
  Receipt Date: 20071102
  Transmission Date: 20080405
  Serious: Yes (Hospitalization, Other)
  Sender: FDA-Public Use
  Company Number: PHBS2007JP18471

PATIENT

DRUGS (1)
  1. COMTAN [Suspect]
     Route: 048

REACTIONS (1)
  - HYPOKALAEMIA [None]
